FAERS Safety Report 4276561-2 (Version None)
Quarter: 2004Q1

REPORT INFORMATION
  Report Type: 
  Country: None (occurrence: None)
  Receive Date: 20040120
  Receipt Date: 20031230
  Transmission Date: 20041129
  Serious: Yes (Other)
  Sender: FDA-Public Use
  Company Number: 7099

PATIENT
  Age: 39 Year
  Sex: Male

DRUGS (2)
  1. METHOTREXATE [Suspect]
     Indication: CROHN'S DISEASE
     Dosage: 25 MG WEEKLY IM
     Route: 030
  2. METHOTREXATE [Suspect]
     Indication: FISTULA
     Dosage: 25 MG WEEKLY IM
     Route: 030

REACTIONS (3)
  - DRUG INEFFECTIVE [None]
  - FUNGAL INFECTION [None]
  - PYREXIA [None]
